FAERS Safety Report 9100238 (Version 4)
Quarter: 2014Q2

REPORT INFORMATION
  Report Type: Report from Study
  Country: CA (occurrence: CA)
  Receive Date: 20130215
  Receipt Date: 20140416
  Transmission Date: 20141212
  Serious: Yes (Other)
  Sender: FDA-Public Use
  Company Number: CA-ROCHE-1181068

PATIENT
  Age: 66 Year
  Sex: Male
  Weight: 83.6 kg

DRUGS (8)
  1. ACTEMRA [Suspect]
     Indication: RHEUMATOID ARTHRITIS
     Route: 042
     Dates: start: 20121121
  2. ACTEMRA [Suspect]
     Route: 042
     Dates: start: 20130116
  3. RABEPRAZOLE [Concomitant]
  4. COVERSYL [Concomitant]
  5. VITAMIN B12 [Concomitant]
  6. GARLIC PILLS [Concomitant]
     Route: 048
  7. METHOTREXATE [Concomitant]
     Route: 065
  8. PREDNISONE [Concomitant]
     Route: 065

REACTIONS (22)
  - Bone disorder [Recovering/Resolving]
  - Nodule [Unknown]
  - Skin abrasion [Not Recovered/Not Resolved]
  - Nausea [Recovered/Resolved]
  - Retching [Recovered/Resolved]
  - Diarrhoea [Recovered/Resolved]
  - Pain [Unknown]
  - Blood pressure diastolic increased [Recovering/Resolving]
  - Weight increased [Not Recovered/Not Resolved]
  - Nasopharyngitis [Not Recovered/Not Resolved]
  - Weight decreased [Not Recovered/Not Resolved]
  - Eye swelling [Unknown]
  - Ocular hyperaemia [Unknown]
  - Eye discharge [Unknown]
  - Foot deformity [Not Recovered/Not Resolved]
  - Wound [Recovered/Resolved]
  - Pain in extremity [Not Recovered/Not Resolved]
  - Erythema [Not Recovered/Not Resolved]
  - Rheumatoid arthritis [Not Recovered/Not Resolved]
  - Arthralgia [Not Recovered/Not Resolved]
  - Ingrowing nail [Unknown]
  - Wound [Not Recovered/Not Resolved]
